FAERS Safety Report 7714761-7 (Version None)
Quarter: 2011Q3

REPORT INFORMATION
  Report Type: 
  Country: None (occurrence: None)
  Receive Date: 20110822
  Receipt Date: 20110804
  Transmission Date: 20111222
  Serious: Yes (Death, Hospitalization)
  Sender: FDA-Public Use
  Company Number: 2011MA011374

PATIENT
  Age: 50 Year
  Sex: Female

DRUGS (3)
  1. LORAZEPAM [Suspect]
     Indication: MANIA
  2. VALPROIC ACID [Suspect]
     Indication: MANIA
  3. HALOPERIDOL [Suspect]
     Indication: MANIA

REACTIONS (1)
  - ACUTE MYOCARDIAL INFARCTION [None]
